FAERS Safety Report 5800880-9 (Version None)
Quarter: 2008Q3

REPORT INFORMATION
  Report Type: 
  Country: None (occurrence: None)
  Receive Date: 20080701
  Receipt Date: 20080618
  Transmission Date: 20090109
  Serious: Yes (Hospitalization)
  Sender: FDA-Public Use
  Company Number: 19614

PATIENT
  Age: 43 Year
  Sex: Female
  Weight: 45.2 kg

DRUGS (5)
  1. CARBOPLATIN [Suspect]
     Dates: start: 20071211, end: 20071211
  2. PACLITAXEL [Suspect]
     Dosage: 228 MG
     Dates: start: 20071211, end: 20071211
  3. CETIRIZINE HCL [Concomitant]
  4. DOMPERIDONE [Concomitant]
  5. PALONOSETRON [Concomitant]

REACTIONS (10)
  - CHILLS [None]
  - COUGH [None]
  - FEELING HOT [None]
  - HEADACHE [None]
  - INFUSION SITE ERYTHEMA [None]
  - INFUSION SITE URTICARIA [None]
  - NAUSEA [None]
  - OXYGEN SATURATION DECREASED [None]
  - PRURITUS [None]
  - TACHYCARDIA [None]
